FAERS Safety Report 12174742 (Version 3)
Quarter: 2016Q2

REPORT INFORMATION
  Report Type: Spontaneous
  Country: GB (occurrence: GB)
  Receive Date: 20160314
  Receipt Date: 20160521
  Transmission Date: 20160815
  Serious: Yes (Death, Hospitalization, Other)
  Sender: FDA-Public Use
  Company Number: GB-AMGEN-GBRSP2016030694

PATIENT
  Age: 78 Year
  Sex: Male

DRUGS (10)
  1. CODEINE PHOSPHATE [Concomitant]
     Active Substance: CODEINE PHOSPHATE
     Dosage: UNK
  2. VENTOLIN [Concomitant]
     Active Substance: ALBUTEROL SULFATE
     Dosage: 100 MUG, AS NECESSARY
     Route: 048
  3. LAXIDO [Concomitant]
     Active Substance: POLYETHYLENE GLYCOL 3350\POTASSIUM CHLORIDE\SODIUM BICARBONATE\SODIUM CHLORIDE
     Dosage: UNK UNK, BID
  4. PARACETAMOL [Concomitant]
     Active Substance: ACETAMINOPHEN
     Dosage: 500 MG, FOUR TIMES A DAY
     Route: 048
  5. ARANESP [Suspect]
     Active Substance: DARBEPOETIN ALFA
     Indication: PRODUCT USED FOR UNKNOWN INDICATION
     Dosage: 20 MUG, UNK
     Route: 065
  6. BUMETANIDE. [Concomitant]
     Active Substance: BUMETANIDE
     Dosage: 1 MG, BID
     Route: 048
  7. TAMSULOSIN HYDROCHLORIDE. [Concomitant]
     Active Substance: TAMSULOSIN HYDROCHLORIDE
     Dosage: UNK
  8. BISOPROLOL FUMARATE. [Concomitant]
     Active Substance: BISOPROLOL FUMARATE
     Dosage: 1.25 MG, QD
     Route: 048
  9. SERETIDE [Concomitant]
     Active Substance: FLUTICASONE PROPIONATE\SALMETEROL XINAFOATE
     Dosage: 250 UNK, BID
     Route: 050
  10. ASPIRIN. [Concomitant]
     Active Substance: ASPIRIN
     Dosage: UNK

REACTIONS (20)
  - Type 2 diabetes mellitus [Not Recovered/Not Resolved]
  - Irritable bowel syndrome [Recovered/Resolved]
  - Renal failure [Not Recovered/Not Resolved]
  - Cataract operation [Recovered/Resolved]
  - Small intestinal obstruction [Unknown]
  - Bladder catheterisation [Unknown]
  - Seborrhoeic keratosis [Unknown]
  - Ventricular failure [Not Recovered/Not Resolved]
  - Chronic kidney disease [Not Recovered/Not Resolved]
  - Renal artery stenosis [Not Recovered/Not Resolved]
  - Condition aggravated [Not Recovered/Not Resolved]
  - Asthma [Not Recovered/Not Resolved]
  - Pleural effusion [Unknown]
  - Left ventricular dysfunction [Unknown]
  - Lower gastrointestinal haemorrhage [Unknown]
  - Acute myocardial infarction [Unknown]
  - Death [Fatal]
  - Atrial fibrillation [Not Recovered/Not Resolved]
  - Cardiac pacemaker insertion [Unknown]
  - Gouty arthritis [Recovered/Resolved]

NARRATIVE: CASE EVENT DATE: 2002
